FAERS Safety Report 18538727 (Version 2)
Quarter: 2021Q3

REPORT INFORMATION
  Report Type: Spontaneous
  Country: NL (occurrence: NL)
  Receive Date: 20201123
  Receipt Date: 20210918
  Transmission Date: 20211014
  Serious: Yes (Other)
  Sender: FDA-Public Use
  Company Number: NL-SUN PHARMACEUTICAL INDUSTRIES LTD-2020RR-268600

PATIENT
  Age: 72 Year
  Sex: Male
  Weight: 84 kg

DRUGS (6)
  1. NON SPECIFIED ANTI ARRHYTMICSNON SPECIFIED ANTI ARRHYTMICS [Concomitant]
     Indication: PRODUCT USED FOR UNKNOWN INDICATION
     Dosage: 1 DOSAGE FORM, UNK
     Route: 065
  2. TAMSULOSIN [Suspect]
     Active Substance: TAMSULOSIN
     Indication: BENIGN PROSTATIC HYPERPLASIA
     Dosage: 0.4 MILLIGRAM, DAILY, 1 CAPSULE PER DAG,  0.4 MG
     Route: 065
     Dates: start: 20200917
  3. FLECAINIDE TABLET 100MG / BRAND NAME NOT SPECIFIEDFLECAINIDE TABLET... [Concomitant]
     Indication: PRODUCT USED FOR UNKNOWN INDICATION
     Dosage: 100 MILLIGRAM, BID, 2 X 100 MG
     Route: 065
  4. OMEPRAZOL / BRAND NAME NOT SPECIFIEDOMEPRAZOL [Concomitant]
     Indication: PRODUCT USED FOR UNKNOWN INDICATION
     Dosage: 100 MILLIGRAM, DAILY, OMEPRAZOL 1X100MG,
     Route: 065
  5. NON SPECIFIED ORAL ANTIDIABETICSNON SPECIFIED ORAL ANTIDIABETICS [Concomitant]
     Indication: PRODUCT USED FOR UNKNOWN INDICATION
     Dosage: 1 DOSAGE FORM, UNK
     Route: 065
  6. NON SPECIFIED BLOEDDRUKMEDICATIENON SPECIFIED BLOEDDRUKMEDICATIE [Concomitant]
     Indication: PRODUCT USED FOR UNKNOWN INDICATION
     Dosage: 1 DOSAGE FORM, UNK
     Route: 065

REACTIONS (1)
  - Retrograde ejaculation [Unknown]

NARRATIVE: CASE EVENT DATE: 20201010
